FAERS Safety Report 4489578-X (Version None)
Quarter: 2004Q4

REPORT INFORMATION
  Report Type: 
  Country: None (occurrence: None)
  Receive Date: 20041026
  Receipt Date: 20041012
  Transmission Date: 20050328
  Serious: Yes (Other)
  Sender: FDA-Public Use
  Company Number: EWC041041007

PATIENT
  Age: 52 Year
  Sex: Female

DRUGS (2)
  1. EVISTA [Suspect]
     Indication: OSTEOPOROSIS PROPHYLAXIS
     Dosage: 60 MG/1 DAY
     Dates: start: 20040223, end: 20040618
  2. BENZODIAZEPINE [Concomitant]

REACTIONS (1)
  - METRORRHAGIA [None]
